FAERS Safety Report 26141249 (Version 2)
Quarter: 2025Q4

REPORT INFORMATION
  Report Type: Spontaneous
  Country: US (occurrence: US)
  Receive Date: 20251210
  Receipt Date: 20251214
  Transmission Date: 20260117
  Serious: Yes (Other)
  Sender: PFIZER
  Company Number: US-PFIZER INC-202500043866

PATIENT
  Age: 76 Year
  Sex: Female

DRUGS (4)
  1. IBRANCE [Suspect]
     Active Substance: PALBOCICLIB
     Indication: Breast cancer female
     Dosage: 100MG TABLET FOR 21DAYS ON AND 7 DAYS OFF
     Dates: start: 20220712
  2. IBRANCE [Suspect]
     Active Substance: PALBOCICLIB
     Dosage: TAKE ONE TABLET DAILY
     Route: 048
  3. FASLODEX [Concomitant]
     Active Substance: FULVESTRANT
     Indication: Breast cancer female
     Dosage: UNK
     Dates: start: 20220712
  4. FULVESTRANT [Concomitant]
     Active Substance: FULVESTRANT
     Indication: Breast cancer female
     Dosage: UNK

REACTIONS (1)
  - Neutropenia [Unknown]
